FAERS Safety Report 20946939 (Version 2)
Quarter: 2022Q3

REPORT INFORMATION
  Report Type: Spontaneous
  Country: US (occurrence: None)
  Receive Date: 20220610
  Receipt Date: 20220707
  Transmission Date: 20221026
  Serious: No
  Sender: FDA-Public Use
  Company Number: 2022A182954

PATIENT
  Sex: Male
  Weight: 63.5 kg

DRUGS (1)
  1. BYDUREON BCISE [Suspect]
     Active Substance: EXENATIDE
     Indication: Type 2 diabetes mellitus
     Route: 058

REACTIONS (5)
  - Injection site pain [Unknown]
  - Device use issue [Unknown]
  - Device malfunction [Unknown]
  - Device leakage [Unknown]
  - Wrong technique in device usage process [Unknown]
